FAERS Safety Report 7027300-3 (Version None)
Quarter: 2010Q4

REPORT INFORMATION
  Report Type: 
  Country: None (occurrence: None)
  Receive Date: 20101004
  Receipt Date: 20100924
  Transmission Date: 20110411
  Serious: Yes (Other)
  Sender: FDA-Public Use
  Company Number: BR-PFIZER INC-2010122122

PATIENT
  Sex: Female

DRUGS (2)
  1. CHAMPIX [Suspect]
     Route: 048
  2. DIAZEPAM [Suspect]
     Dosage: 10 MG
     Route: 048

REACTIONS (1)
  - PETIT MAL EPILEPSY [None]
